FAERS Safety Report 13042061 (Version 1)
Quarter: 2016Q4

REPORT INFORMATION
  Report Type: Spontaneous
  Country: GB (occurrence: GB)
  Receive Date: 20161219
  Receipt Date: 20161219
  Transmission Date: 20170207
  Serious: Yes (Other)
  Sender: FDA-Public Use
  Company Number: GB-009507513-1612GBR005639

PATIENT
  Age: 77 Year
  Sex: Female

DRUGS (3)
  1. DOXAZOSIN [Interacting]
     Active Substance: DOXAZOSIN\DOXAZOSIN MESYLATE
     Indication: BLOOD PRESSURE INCREASED
  2. MIRTAZAPINE. [Suspect]
     Active Substance: MIRTAZAPINE
     Dosage: 15 MG, QD
  3. BISOPROLOL [Interacting]
     Active Substance: BISOPROLOL
     Indication: BLOOD PRESSURE INCREASED

REACTIONS (3)
  - Drug interaction [Unknown]
  - Phaeochromocytoma [Unknown]
  - Condition aggravated [Unknown]

NARRATIVE: CASE EVENT DATE: 20161026
